FAERS Safety Report 15470319 (Version 2)
Quarter: 2018Q4

REPORT INFORMATION
  Report Type: Spontaneous
  Country: AU (occurrence: AU)
  Receive Date: 20181005
  Receipt Date: 20181005
  Transmission Date: 20190205
  Serious: Yes (Other)
  Sender: FDA-Public Use
  Company Number: PHHY2018AU113687

PATIENT
  Age: 17 Year
  Sex: Male

DRUGS (2)
  1. CICLOSPORIN [Suspect]
     Active Substance: CYCLOSPORINE
     Indication: CORNEAL TRANSPLANT
  2. CICLOSPORIN [Suspect]
     Active Substance: CYCLOSPORINE
     Indication: EYE ALLERGY
     Route: 065

REACTIONS (3)
  - Vernal keratoconjunctivitis [Unknown]
  - Keratoconus [Unknown]
  - Keratitis bacterial [Unknown]
